FAERS Safety Report 8466990 (Version 3)
Quarter: 2014Q3

REPORT INFORMATION
  Report Type: Spontaneous
  Country: US (occurrence: US)
  Receive Date: 20120320
  Receipt Date: 20140918
  Transmission Date: 20150326
  Serious: Yes (Hospitalization)
  Sender: FDA-Public Use
  Company Number: US-BAYER-2012-023594

PATIENT
  Age: 18 Year
  Sex: Female
  Weight: 54.42 kg

DRUGS (1)
  1. YAZ [Suspect]
     Active Substance: DROSPIRENONE\ETHINYL ESTRADIOL
     Dosage: UNK
     Dates: start: 2010, end: 2011

REACTIONS (10)
  - Anxiety [None]
  - Fear of disease [None]
  - Anhedonia [None]
  - Cerebrovascular accident [None]
  - Thrombosis [None]
  - Injury [None]
  - Emotional distress [None]
  - Retinal artery occlusion [None]
  - Quality of life decreased [None]
  - Pain [None]

NARRATIVE: CASE EVENT DATE: 201001
